FAERS Safety Report 5614227-4 (Version None)
Quarter: 2008Q1

REPORT INFORMATION
  Report Type: 
  Country: None (occurrence: None)
  Receive Date: 20080205
  Receipt Date: 20080205
  Transmission Date: 20080703
  Serious: Yes (Disabling)
  Sender: FDA-Public Use
  Company Number: A0707364A

PATIENT
  Age: 45 Year
  Sex: Female

DRUGS (3)
  1. ALLI [Suspect]
     Route: 048
     Dates: start: 20080127, end: 20080204
  2. LEXAPRO [Concomitant]
  3. NUVARING [Concomitant]

REACTIONS (2)
  - BLOOD URINE PRESENT [None]
  - LIPIDURIA [None]
